FAERS Safety Report 16586275 (Version 2)
Quarter: 2019Q3

REPORT INFORMATION
  Report Type: Spontaneous
  Country: US (occurrence: US)
  Receive Date: 20190717
  Receipt Date: 20190722
  Transmission Date: 20191004
  Serious: Yes (Death, Other)
  Sender: FDA-Public Use
  Company Number: US-ASTRAZENECA-2018SF27073

PATIENT
  Age: 23676 Day
  Sex: Female

DRUGS (3)
  1. MARCAINE [Concomitant]
     Active Substance: BUPIVACAINE HYDROCHLORIDE
  2. PRILOSEC OTC [Suspect]
     Active Substance: OMEPRAZOLE MAGNESIUM
     Route: 048
     Dates: start: 2004
  3. LIDOCAINE. [Concomitant]
     Active Substance: LIDOCAINE

REACTIONS (4)
  - Cardio-respiratory arrest [Fatal]
  - Sepsis [Fatal]
  - End stage renal disease [Fatal]
  - Renal failure [Unknown]

NARRATIVE: CASE EVENT DATE: 20070102
